FAERS Safety Report 25251184 (Version 1)
Quarter: 2025Q2

REPORT INFORMATION
  Report Type: Spontaneous
  Country: ES (occurrence: ES)
  Receive Date: 20250429
  Receipt Date: 20250429
  Transmission Date: 20250717
  Serious: Yes (Other)
  Sender: NOVARTIS
  Company Number: None

PATIENT
  Age: 48 Year
  Sex: Female

DRUGS (6)
  1. TEGRETOL [Suspect]
     Active Substance: CARBAMAZEPINE
     Indication: Trigeminal neuralgia
     Dosage: 200 MG, Q8H, (50 TABLETS)
     Route: 048
     Dates: start: 20250310, end: 20250408
  2. ZOMIG [Concomitant]
     Active Substance: ZOLMITRIPTAN
     Indication: Product used for unknown indication
     Dosage: 2.5 MG, Q24H, (6 TABLETS)
     Route: 048
     Dates: start: 20250403, end: 20250408
  3. OMEPRAZOLE [Concomitant]
     Active Substance: OMEPRAZOLE
     Indication: Product used for unknown indication
     Dosage: 20 MG, Q24H, (28 CAPSULES)
     Route: 048
     Dates: start: 20120608
  4. IBUPROFEN [Concomitant]
     Active Substance: IBUPROFEN
     Indication: Product used for unknown indication
     Dosage: 400 MG, Q8H, (30 TABLETS)
     Route: 048
     Dates: start: 20210510
  5. ZALDIAR [Concomitant]
     Active Substance: ACETAMINOPHEN\TRAMADOL HYDROCHLORIDE
     Indication: Product used for unknown indication
     Dosage: 2 DOSAGE FORM, Q8H, (60 TABLETS)
     Route: 048
     Dates: start: 20171106
  6. METAMIZOLE [Concomitant]
     Active Substance: METAMIZOLE
     Indication: Product used for unknown indication
     Dosage: 575 MG, Q8H, (20 CAPSULES)
     Route: 048
     Dates: start: 20241213

REACTIONS (3)
  - Pruritus [Recovered/Resolved]
  - Erythema [Recovered/Resolved]
  - Vulvovaginal erythema [Recovered/Resolved]

NARRATIVE: CASE EVENT DATE: 20250406
